FAERS Safety Report 8364995-6 (Version None)
Quarter: 2012Q2

REPORT INFORMATION
  Report Type: 
  Country: None (occurrence: None)
  Receive Date: 20120516
  Receipt Date: 20120509
  Transmission Date: 20120825
  Serious: Yes (Hospitalization)
  Sender: FDA-Public Use
  Company Number: US-GLAXOSMITHKLINE-A0976981A

PATIENT
  Age: 82 Year
  Sex: Female

DRUGS (6)
  1. FLOVENT [Suspect]
     Indication: ASTHMA
     Route: 055
  2. VITAMIN D [Concomitant]
  3. WARFARIN SODIUM [Concomitant]
  4. ADVAIR DISKUS 100/50 [Suspect]
     Indication: ASTHMA
     Dosage: 1PUFF TWICE PER DAY
     Route: 055
  5. ALBUTEROL SULFATE [Concomitant]
  6. FLECAINIDE ACETATE [Concomitant]

REACTIONS (2)
  - FRACTURE [None]
  - THERAPEUTIC RESPONSE DECREASED [None]
